FAERS Safety Report 7382453-2 (Version None)
Quarter: 2011Q1

REPORT INFORMATION
  Report Type: 
  Country: None (occurrence: None)
  Receive Date: 20110329
  Receipt Date: 20110315
  Transmission Date: 20110831
  Serious: Yes (Other)
  Sender: FDA-Public Use
  Company Number: JP-BAYER-2011-024122

PATIENT
  Age: 58 Year
  Sex: Male

DRUGS (2)
  1. NEXAVAR [Suspect]
     Dosage: 400 MG, QD
     Route: 048
     Dates: start: 20090901
  2. NEXAVAR [Suspect]
     Indication: HEPATIC NEOPLASM MALIGNANT
     Dosage: 800 MG, QD
     Route: 048
     Dates: start: 20090918, end: 20090901

REACTIONS (6)
  - ALTERED STATE OF CONSCIOUSNESS [None]
  - TUMOUR MARKER INCREASED [None]
  - CONFUSIONAL STATE [None]
  - HEPATIC ENCEPHALOPATHY [None]
  - HYPERAMMONAEMIA [None]
  - ASTERIXIS [None]
